FAERS Safety Report 11643307 (Version 4)
Quarter: 2017Q2

REPORT INFORMATION
  Report Type: Spontaneous
  Country: US (occurrence: US)
  Receive Date: 20151020
  Receipt Date: 20170609
  Transmission Date: 20170829
  Serious: Yes (Hospitalization)
  Sender: FDA-Public Use
  Company Number: US-BAYER-2015-446260

PATIENT
  Age: 23 Year
  Sex: Female

DRUGS (3)
  1. TERAZOL [Concomitant]
     Active Substance: TERCONAZOLE
     Indication: VAGINAL INFECTION
     Dosage: 1 VAGINAL SUPPOSITORY.
     Route: 067
  2. XANAX [Concomitant]
     Active Substance: ALPRAZOLAM
     Indication: ANXIETY
     Dosage: 0.25 MG, QD, EVERY 8 HOUR
     Route: 048
  3. MIRENA [Suspect]
     Active Substance: LEVONORGESTREL
     Indication: CONTRACEPTION
     Dosage: 20 MCG/24HR, CONT
     Route: 015
     Dates: start: 20110308, end: 20111101

REACTIONS (5)
  - Dysstasia [None]
  - Uterine perforation [None]
  - Injury [None]
  - Abdominal pain [None]
  - Device issue [None]

NARRATIVE: CASE EVENT DATE: 20111101
